FAERS Safety Report 4304292-9 (Version None)
Quarter: 2004Q1

REPORT INFORMATION
  Report Type: 
  Country: None (occurrence: None)
  Receive Date: 20040224
  Receipt Date: 20040211
  Transmission Date: 20041129
  Serious: Yes (Life-Threatening, Hospitalization, Other)
  Sender: FDA-Public Use
  Company Number: 2004009095

PATIENT
  Age: 81 Year
  Sex: Female
  Weight: 66.6788 kg

DRUGS (16)
  1. TIKOSYN [Suspect]
     Indication: ATRIAL FIBRILLATION
     Dosage: ORAL
     Route: 048
     Dates: start: 20001101, end: 20030101
  2. HALOPERIDOL [Suspect]
     Indication: AGITATION POSTOPERATIVE
     Dosage: 7 MG (EVERY 4 HOURS PRN), INTRAVENOUS
     Route: 042
     Dates: start: 20030920, end: 20030922
  3. FUROSEMIDE [Concomitant]
  4. POTASSIUM CHLORIDE [Concomitant]
  5. ACETYLSALICYLIC (ACETYLSALICYLIC ACID) [Concomitant]
  6. DOCUSATE SODIUM (DOCUSATE SODIUM) [Concomitant]
  7. MAALOX (MAGNESIUM HYDROXIDE, ALUMINIUM HYDROXIDE GEL) [Concomitant]
  8. OXYCOCET (PARACETAMOL, OXYCODONE HYDROCHLORIDE) [Concomitant]
  9. VICODIN [Concomitant]
  10. DIPHENHYDRAMINE (DIPHENHIDRAMINE) [Concomitant]
  11. HYDROMORPHONE HCL [Concomitant]
  12. MORPHINE [Concomitant]
  13. WARFARIN SODIUM [Concomitant]
  14. ROFECOXIB [Concomitant]
  15. FAMOTIDINE [Concomitant]
  16. LORATADINE [Concomitant]

REACTIONS (8)
  - AGITATION POSTOPERATIVE [None]
  - DYSPNOEA EXERTIONAL [None]
  - LOSS OF CONSCIOUSNESS [None]
  - MITRAL VALVE INCOMPETENCE [None]
  - TORSADE DE POINTES [None]
  - VENTRICULAR EXTRASYSTOLES [None]
  - VENTRICULAR FIBRILLATION [None]
  - VENTRICULAR TACHYCARDIA [None]
